FAERS Safety Report 12321870 (Version 1)
Quarter: 2016Q2

REPORT INFORMATION
  Report Type: Spontaneous
  Country: US (occurrence: US)
  Receive Date: 20160502
  Receipt Date: 20160502
  Transmission Date: 20160815
  Serious: No
  Sender: FDA-Public Use
  Company Number: US-GLAXOSMITHKLINE-US2016052251

PATIENT
  Age: 85 Year
  Sex: Male

DRUGS (2)
  1. ADVAIR DISKUS [Suspect]
     Active Substance: FLUTICASONE PROPIONATE\SALMETEROL XINAFOATE
     Indication: CHRONIC OBSTRUCTIVE PULMONARY DISEASE
     Dosage: 1 PUFF(S), BID
     Route: 055
  2. OXYBUTYNIN [Suspect]
     Active Substance: OXYBUTYNIN
     Indication: PRODUCT USED FOR UNKNOWN INDICATION
     Dosage: UNK

REACTIONS (10)
  - Tongue discolouration [Not Recovered/Not Resolved]
  - Chest discomfort [Unknown]
  - Oral discomfort [Not Recovered/Not Resolved]
  - Lip pain [Not Recovered/Not Resolved]
  - Tongue blistering [Not Recovered/Not Resolved]
  - Fatigue [Not Recovered/Not Resolved]
  - Gastric disorder [Not Recovered/Not Resolved]
  - Hypophagia [Not Recovered/Not Resolved]
  - Malaise [Unknown]
  - Glossodynia [Not Recovered/Not Resolved]

NARRATIVE: CASE EVENT DATE: 201604
